FAERS Safety Report 7788982-1 (Version None)
Quarter: 2011Q3

REPORT INFORMATION
  Report Type: 
  Country: None (occurrence: None)
  Receive Date: 20110930
  Receipt Date: 20110928
  Transmission Date: 20111222
  Serious: Yes (Death, Life-Threatening, Hospitalization, Other)
  Sender: FDA-Public Use
  Company Number: PHHY2011BR50416

PATIENT
  Sex: Female

DRUGS (4)
  1. FORMOTEROL FUMARATE [Suspect]
     Dosage: (12/400 UG) 1 DF, UNK
  2. DIOVAN HCT [Suspect]
     Indication: CARDIOPULMONARY FAILURE
     Dosage: 80 MG VALS AND 12.5 MG HYDR
  3. MICARDIS [Concomitant]
     Dosage: 80 MG, UNK
  4. FORMOTEROL FUMARATE [Suspect]
     Indication: CARDIOPULMONARY FAILURE
     Dosage: 400 UG, UNK

REACTIONS (5)
  - LUNG DISORDER [None]
  - BACTERIAL INFECTION [None]
  - CARDIOPULMONARY FAILURE [None]
  - DECREASED APPETITE [None]
  - APHASIA [None]
